FAERS Safety Report 5962079-5 (Version None)
Quarter: 2008Q4

REPORT INFORMATION
  Report Type: 
  Country: None (occurrence: None)
  Receive Date: 20081121
  Receipt Date: 20081112
  Transmission Date: 20090506
  Serious: Yes (Other)
  Sender: FDA-Public Use
  Company Number: US-NOVOPROD-281363

PATIENT
  Sex: Male
  Weight: 75.283 kg

DRUGS (2)
  1. NOVOLIN N [Suspect]
     Indication: TYPE 1 DIABETES MELLITUS
     Dosage: 20 UNITS QAM + 15 UNITS QPM
     Route: 058
     Dates: start: 20080501
  2. PERCOCET [Concomitant]
     Indication: BACK INJURY
     Dosage: 4 TABS QD
     Route: 048

REACTIONS (4)
  - BLOOD GLUCOSE DECREASED [None]
  - DYSSTASIA [None]
  - FALL [None]
  - MUSCULAR WEAKNESS [None]
